FAERS Safety Report 7897514-9 (Version None)
Quarter: 2011Q4

REPORT INFORMATION
  Report Type: 
  Country: None (occurrence: None)
  Receive Date: 20111107
  Receipt Date: 20111102
  Transmission Date: 20120403
  Serious: Yes (Other)
  Sender: FDA-Public Use
  Company Number: US-PFIZER INC-2011268596

PATIENT
  Sex: Female

DRUGS (1)
  1. CHANTIX [Suspect]
     Dosage: UNK

REACTIONS (6)
  - MALAISE [None]
  - MENTAL DISORDER [None]
  - HYPOAESTHESIA [None]
  - CHEST PAIN [None]
  - VOMITING [None]
  - CRYING [None]
